FAERS Safety Report 5324699-0 (Version None)
Quarter: 2007Q2

REPORT INFORMATION
  Report Type: 
  Country: None (occurrence: None)
  Receive Date: 20070220
  Receipt Date: 20061217
  Transmission Date: 20071010
  Serious: No
  Sender: FDA-Public Use
  Company Number: WAES 0612USA03036

PATIENT
  Age: 20 Year
  Sex: Female

DRUGS (1)
  1. JANUVIA [Suspect]
     Indication: BLOOD GLUCOSE INCREASED
     Dosage: PO
     Route: 048
     Dates: start: 20061201

REACTIONS (1)
  - BLOOD GLUCOSE INCREASED [None]
